FAERS Safety Report 4515404-6 (Version None)
Quarter: 2004Q4

REPORT INFORMATION
  Report Type: 
  Country: None (occurrence: None)
  Receive Date: 20041126
  Receipt Date: 20041112
  Transmission Date: 20050328
  Serious: Yes (Hospitalization)
  Sender: FDA-Public Use
  Company Number: 2004092116

PATIENT
  Sex: 0

DRUGS (2)
  1. TIKOSYN [Suspect]
     Indication: ILL-DEFINED DISORDER
  2. BUMETANIDE [Concomitant]

REACTIONS (1)
  - BLOOD POTASSIUM DECREASED [None]
